FAERS Safety Report 11471813 (Version 3)
Quarter: 2016Q3

REPORT INFORMATION
  Report Type: Spontaneous
  Country: US (occurrence: US)
  Receive Date: 20150908
  Receipt Date: 20160803
  Transmission Date: 20161109
  Serious: Yes (Other)
  Sender: FDA-Public Use
  Company Number: US-BAYER-2015-410938

PATIENT
  Age: 66 Year
  Sex: Male
  Weight: 64.41 kg

DRUGS (1)
  1. CIPRO [Suspect]
     Active Substance: CIPROFLOXACIN HYDROCHLORIDE
     Indication: PROSTATE INFECTION
     Dosage: UNK
     Dates: start: 20101117, end: 20101127

REACTIONS (15)
  - Pain [None]
  - Depressed mood [None]
  - Initial insomnia [None]
  - Emotional distress [None]
  - Unevaluable event [None]
  - Limb discomfort [None]
  - Insomnia [None]
  - Gait disturbance [None]
  - Toxic neuropathy [None]
  - Coordination abnormal [None]
  - Feeling abnormal [None]
  - Neuropathy peripheral [None]
  - Injury [None]
  - Paraesthesia [None]
  - Mobility decreased [None]
